FAERS Safety Report 23356465 (Version 10)
Quarter: 2024Q4

REPORT INFORMATION
  Report Type: Spontaneous
  Country: US (occurrence: US)
  Receive Date: 20240102
  Receipt Date: 20241029
  Transmission Date: 20250115
  Serious: Yes (Hospitalization, Other)
  Sender: GLAXOSMITHKLINE
  Company Number: US-GLAXOSMITHKLINE-US2023178651

PATIENT

DRUGS (8)
  1. ZEJULA [Suspect]
     Active Substance: NIRAPARIB
     Indication: Ovarian cancer
     Dosage: 100 MG, QD
     Route: 048
     Dates: start: 20231111
  2. ZEJULA [Suspect]
     Active Substance: NIRAPARIB
     Indication: Metastatic neoplasm
     Dosage: 300 MG, QD
  3. ZEJULA [Suspect]
     Active Substance: NIRAPARIB
     Indication: Thalassaemia
     Dosage: 100 MG, QD
     Route: 048
     Dates: start: 20231208
  4. ZEJULA [Suspect]
     Active Substance: NIRAPARIB
     Dosage: 100 MG, QD
     Route: 048
  5. ZEJULA [Suspect]
     Active Substance: NIRAPARIB
     Dosage: 100 MG, QD
     Route: 048
  6. ZEJULA [Suspect]
     Active Substance: NIRAPARIB
     Dosage: 100 MG, QD
     Dates: start: 20231208
  7. ZEJULA [Suspect]
     Active Substance: NIRAPARIB
     Dosage: 100 MG, QD
  8. ZEJULA [Suspect]
     Active Substance: NIRAPARIB
     Dosage: 100 MG, QD
     Route: 048

REACTIONS (37)
  - Illness [Unknown]
  - Gingival pain [Not Recovered/Not Resolved]
  - Thrombosis [Unknown]
  - Deafness [Unknown]
  - Thyroid disorder [Unknown]
  - Glossodynia [Unknown]
  - Oral pain [Recovered/Resolved]
  - Dysphagia [Unknown]
  - Constipation [Unknown]
  - Stomatitis [Unknown]
  - Glossitis [Unknown]
  - Nausea [Unknown]
  - Abdominal discomfort [Unknown]
  - Dyspepsia [Unknown]
  - Arthralgia [Unknown]
  - Platelet count decreased [Unknown]
  - Amnesia [Unknown]
  - Blood pressure abnormal [Unknown]
  - Headache [Recovered/Resolved]
  - Palpitations [Unknown]
  - Gastrooesophageal reflux disease [Unknown]
  - Back pain [Unknown]
  - Dysphonia [Recovered/Resolved]
  - Weight decreased [Recovered/Resolved]
  - Malaise [Unknown]
  - Head discomfort [Unknown]
  - Sinus disorder [Unknown]
  - Diarrhoea [Unknown]
  - Vision blurred [Unknown]
  - Oropharyngeal pain [Recovered/Resolved]
  - Pharyngeal swelling [Recovered/Resolved]
  - Blood pressure increased [Unknown]
  - Sinusitis [Recovering/Resolving]
  - Multiple allergies [Unknown]
  - Product use in unapproved indication [Unknown]
  - Product dose omission issue [Unknown]
  - Product use issue [Unknown]

NARRATIVE: CASE EVENT DATE: 20240223
